FAERS Safety Report 6525534-5 (Version None)
Quarter: 2009Q4

REPORT INFORMATION
  Report Type: 
  Country: None (occurrence: None)
  Receive Date: 20091224
  Receipt Date: 20091211
  Transmission Date: 20100525
  Serious: Yes (Death, Hospitalization)
  Sender: FDA-Public Use
  Company Number: 2009BI039175

PATIENT
  Age: 48 Year
  Sex: Female

DRUGS (7)
  1. ZEVALIN [Suspect]
     Indication: DIFFUSE LARGE B-CELL LYMPHOMA
     Dosage: 28 MCI; 1X; IV
     Route: 042
     Dates: start: 20091029, end: 20091029
  2. RITUXIMAB [Concomitant]
  3. CARMUSTINE [Concomitant]
  4. ETOPOSIDE [Concomitant]
  5. ARACYTINE [Concomitant]
  6. MELPHALAN HYDROCHLORIDE [Concomitant]
  7. EUTIROX [Concomitant]

REACTIONS (13)
  - CANDIDIASIS [None]
  - DEVICE RELATED INFECTION [None]
  - HEPATIC FAILURE [None]
  - HYPOGLYCAEMIC COMA [None]
  - MUCOSAL INFLAMMATION [None]
  - MULTI-ORGAN FAILURE [None]
  - NEUTROPENIA [None]
  - PLEURAL EFFUSION [None]
  - PNEUMONIA [None]
  - PSEUDOMONAS INFECTION [None]
  - RENAL FAILURE ACUTE [None]
  - SEPTIC SHOCK [None]
  - THROMBOCYTOPENIA [None]
